FAERS Safety Report 9820069 (Version 1)
Quarter: 2013Q4

REPORT INFORMATION
  Report Type: Spontaneous
  Country: US (occurrence: None)
  Receive Date: 20131223
  Receipt Date: 20131223
  Transmission Date: 20140711
  Serious: No
  Sender: FDA-Public Use
  Company Number: 221210

PATIENT
  Age: 53 Year
  Sex: Male

DRUGS (3)
  1. PICATO [Suspect]
     Indication: ACTINIC KERATOSIS
     Route: 061
     Dates: start: 20130405, end: 20130406
  2. LISINOPRIL (LISINOPRIL (20 MG) [Concomitant]
  3. SIMVASTATIN (SIMVASTATIN 20 MG) [Concomitant]

REACTIONS (5)
  - Application site exfoliation [None]
  - Application site pruritus [None]
  - Incorrect dose administered [None]
  - Inappropriate schedule of drug administration [None]
  - Drug administered at inappropriate site [None]
